FAERS Safety Report 6655651-0 (Version None)
Quarter: 2010Q1

REPORT INFORMATION
  Report Type: 
  Country: None (occurrence: None)
  Receive Date: 20100329
  Receipt Date: 20100317
  Transmission Date: 20100710
  Serious: Yes (Hospitalization, Other)
  Sender: FDA-Public Use
  Company Number: US-PFIZER INC-2010004852

PATIENT
  Sex: Male
  Weight: 109 kg

DRUGS (10)
  1. CLEOCIN [Suspect]
     Indication: TOOTH INFECTION
     Dosage: 150 MG, 3X/DAY
     Route: 048
     Dates: start: 20090907, end: 20090909
  2. FLAGYL [Suspect]
     Dosage: UNK
     Dates: start: 20090901
  3. NEURONTIN [Concomitant]
     Indication: BACK DISORDER
     Dosage: UNK
  4. TIZANIDINE [Concomitant]
     Indication: BACK DISORDER
     Dosage: UNK
  5. HYDROCODONE [Concomitant]
     Indication: BACK DISORDER
     Dosage: OCCASIONAL
  6. PAROXETINE [Concomitant]
     Indication: ANXIETY
     Dosage: UNK
  7. PROPRANOLOL [Concomitant]
     Indication: ANXIETY
     Dosage: UNK
  8. BUPROPION [Concomitant]
     Indication: ANXIETY
     Dosage: UNK
  9. ALPRAZOLAM [Concomitant]
     Indication: ANXIETY
     Dosage: UNK
  10. ADDERALL 30 [Concomitant]
     Indication: SLEEP DISORDER
     Dosage: UNK

REACTIONS (9)
  - ABDOMINAL DISTENSION [None]
  - ABDOMINAL PAIN UPPER [None]
  - ABSCESS [None]
  - APPLICATION SITE REACTION [None]
  - DIVERTICULITIS [None]
  - FLATULENCE [None]
  - INFREQUENT BOWEL MOVEMENTS [None]
  - LARGE INTESTINE PERFORATION [None]
  - PYREXIA [None]
